FAERS Safety Report 20111457 (Version 1)
Quarter: 2021Q4

REPORT INFORMATION
  Report Type: Spontaneous
  Country: US (occurrence: US)
  Receive Date: 20211125
  Receipt Date: 20211125
  Transmission Date: 20220303
  Serious: No
  Sender: FDA-Public Use
  Company Number: US-EDENBRIDGE PHARMACEUTICALS, LLC-US-2020EDE000052

PATIENT

DRUGS (1)
  1. IVERMECTIN [Suspect]
     Active Substance: IVERMECTIN
     Indication: COVID-19
     Dosage: UNK

REACTIONS (2)
  - Off label use [Unknown]
  - Therapeutic response unexpected [Unknown]
